FAERS Safety Report 7104782-X (Version None)
Quarter: 2010Q4

REPORT INFORMATION
  Report Type: 
  Country: None (occurrence: None)
  Receive Date: 20101116
  Receipt Date: 20101105
  Transmission Date: 20110411
  Serious: Yes (Other)
  Sender: FDA-Public Use
  Company Number: US-PFIZER INC-2010146776

PATIENT

DRUGS (1)
  1. SYNAREL [Suspect]

REACTIONS (1)
  - SURGERY [None]
